FAERS Safety Report 7606458-9 (Version None)
Quarter: 2011Q3

REPORT INFORMATION
  Report Type: 
  Country: None (occurrence: None)
  Receive Date: 20110712
  Receipt Date: 20110712
  Transmission Date: 20111222
  Serious: No
  Sender: FDA-Public Use
  Company Number: None

PATIENT
  Sex: Female

DRUGS (1)
  1. MEPERIDINE HCL [Suspect]
     Indication: PAIN
     Dosage: 100 MG Q6H PO
     Route: 048
     Dates: start: 20110602

REACTIONS (3)
  - PRODUCT TASTE ABNORMAL [None]
  - PRODUCT ODOUR ABNORMAL [None]
  - MALAISE [None]
